FAERS Safety Report 5907269-2 (Version None)
Quarter: 2008Q4

REPORT INFORMATION
  Report Type: 
  Country: None (occurrence: None)
  Receive Date: 20081003
  Receipt Date: 20080929
  Transmission Date: 20090506
  Serious: Yes (Death, Hospitalization)
  Sender: FDA-Public Use
  Company Number: PHHY2008JP10875

PATIENT
  Sex: Female
  Weight: 54 kg

DRUGS (8)
  1. FEMARA [Suspect]
     Indication: BREAST CANCER
     Dosage: 2.5 MG, UNK
     Route: 048
     Dates: start: 20080404, end: 20080426
  2. FARMORUBICIN [Suspect]
     Dosage: 130 MG, UNK
     Route: 041
     Dates: start: 20071129, end: 20080314
  3. CYCLOPHOSPHAMIDE [Suspect]
     Dosage: 100 MG, UNK
     Route: 041
     Dates: start: 20071129, end: 20080314
  4. MYSLEE [Concomitant]
     Indication: INSOMNIA
     Dosage: 5 MG, UNK
     Route: 048
     Dates: start: 20071203, end: 20080418
  5. SEROTONE [Concomitant]
     Dosage: 10 MG, UNK
     Route: 048
     Dates: start: 20071129, end: 20080314
  6. DEXAMETHASONE SODIUM PHOSPHATE [Concomitant]
     Dosage: 20 MG, UNK
     Route: 042
     Dates: start: 20071129, end: 20080314
  7. DEXAMETHASONE [Concomitant]
     Dosage: 3 MG, UNK
     Route: 048
     Dates: start: 20071129, end: 20080315
  8. PROTECADIN [Concomitant]
     Dosage: 20 MG, UNK
     Route: 048
     Dates: start: 20071128, end: 20080403

REACTIONS (29)
  - ACIDOSIS [None]
  - ALANINE AMINOTRANSFERASE INCREASED [None]
  - APPETITE DISORDER [None]
  - ASPARTATE AMINOTRANSFERASE INCREASED [None]
  - ASTHENIA [None]
  - BLOOD ALKALINE PHOSPHATASE INCREASED [None]
  - BLOOD BILIRUBIN INCREASED [None]
  - BLOOD CREATININE INCREASED [None]
  - BLOOD LACTATE DEHYDROGENASE INCREASED [None]
  - BLOOD POTASSIUM INCREASED [None]
  - BLOOD PRESSURE DECREASED [None]
  - BLOOD UREA INCREASED [None]
  - CARDIAC FAILURE [None]
  - CARDIOMEGALY [None]
  - DYSPNOEA [None]
  - EJECTION FRACTION DECREASED [None]
  - FATIGUE [None]
  - HAEMORRHAGIC DIATHESIS [None]
  - HEPATIC CONGESTION [None]
  - HEPATIC FAILURE [None]
  - HEPATIC FUNCTION ABNORMAL [None]
  - HEPATITIS FULMINANT [None]
  - LIVER DISORDER [None]
  - MULTI-ORGAN FAILURE [None]
  - PLATELET COUNT DECREASED [None]
  - PLEURAL EFFUSION [None]
  - PROTHROMBIN TIME PROLONGED [None]
  - SHOCK [None]
  - URINE OUTPUT DECREASED [None]
